FAERS Safety Report 9025880 (Version 1)
Quarter: 2013Q1

REPORT INFORMATION
  Report Type: Spontaneous
  Country: US (occurrence: None)
  Receive Date: 20130104
  Receipt Date: 20130104
  Transmission Date: 20140127
  Serious: Yes (Hospitalization)
  Sender: FDA-Public Use
  Company Number: DSU-2012-10211

PATIENT
  Age: 56 Year
  Sex: Male

DRUGS (4)
  1. BENICAR HCT [Suspect]
     Indication: HYPERTENSION
     Route: 048
     Dates: start: 201212, end: 201212
  2. HYZAAR (HYDROCHLOROTHIAZIDE, LOSARTAN POTASSIUM) (HYDROCHLOROTHIAZIDE, LOSARTAN POTASSIUM) [Concomitant]
  3. METOPROLOL (METOPROLOL) (METOPROLOL) [Concomitant]
  4. ASPIRIN (ACETYLSALICYLIC ACID) (81 MILLIGRAM) (ACETYLSALICYLIC ACID) [Concomitant]

REACTIONS (4)
  - Urticaria [None]
  - Chest pain [None]
  - Local swelling [None]
  - Testicular swelling [None]
